FAERS Safety Report 7511377-2 (Version None)
Quarter: 2011Q2

REPORT INFORMATION
  Report Type: 
  Country: None (occurrence: None)
  Receive Date: 20110531
  Receipt Date: 20110523
  Transmission Date: 20111010
  Serious: No
  Sender: FDA-Public Use
  Company Number: US-BAYER-201020390NA

PATIENT
  Sex: Female

DRUGS (1)
  1. YAZ [Suspect]
     Indication: CONTRACEPTION

REACTIONS (4)
  - MIGRAINE [None]
  - WEIGHT INCREASED [None]
  - INCREASED APPETITE [None]
  - MENSTRUATION IRREGULAR [None]
